FAERS Safety Report 24993570 (Version 1)
Quarter: 2025Q1

REPORT INFORMATION
  Report Type: Spontaneous
  Country: US (occurrence: US)
  Receive Date: 20250221
  Receipt Date: 20250221
  Transmission Date: 20250408
  Serious: No
  Sender: CHURCH & DWIGHT
  Company Number: US-ChurchDwight-2025-CDW-00253

PATIENT

DRUGS (2)
  1. ZICAM COLD AND FLU-LIKE SYMPTOMS [Suspect]
     Active Substance: ECHINACEA ANGUSTIFOLIA\SAMBUCUS NIGRA FLOWERING TOP\ZINC ACETATE ANHYDROUS\ZINC GLUCONATE
     Indication: Product used for unknown indication
     Route: 048
     Dates: start: 20250214
  2. AIRBORNE [Suspect]
     Active Substance: HERBALS\MINERALS\VITAMINS
     Indication: Product used for unknown indication
     Route: 065
     Dates: start: 20250214

REACTIONS (3)
  - Ageusia [Recovering/Resolving]
  - Diarrhoea [Not Recovered/Not Resolved]
  - Accidental overdose [Unknown]

NARRATIVE: CASE EVENT DATE: 20250214
